FAERS Safety Report 25613497 (Version 1)
Quarter: 2025Q3

REPORT INFORMATION
  Report Type: Spontaneous
  Country: US (occurrence: US)
  Receive Date: 20250728
  Receipt Date: 20250728
  Transmission Date: 20251021
  Serious: No
  Sender: MYLAN
  Company Number: US-MYLANLABS-2025M1060099

PATIENT
  Age: 15 Year
  Sex: Female

DRUGS (8)
  1. BREYNA [Suspect]
     Active Substance: BUDESONIDE\FORMOTEROL FUMARATE
     Indication: Product used for unknown indication
     Dosage: UNK, BID (1-2 PUFFS TWICE A DAY AS DIRECTED)
  2. BREYNA [Suspect]
     Active Substance: BUDESONIDE\FORMOTEROL FUMARATE
     Dosage: UNK, BID (1-2 PUFFS TWICE A DAY AS DIRECTED)
  3. BREYNA [Suspect]
     Active Substance: BUDESONIDE\FORMOTEROL FUMARATE
     Dosage: UNK, BID (1-2 PUFFS TWICE A DAY AS DIRECTED)
     Route: 055
  4. BREYNA [Suspect]
     Active Substance: BUDESONIDE\FORMOTEROL FUMARATE
     Dosage: UNK, BID (1-2 PUFFS TWICE A DAY AS DIRECTED)
     Route: 055
  5. BREYNA [Suspect]
     Active Substance: BUDESONIDE\FORMOTEROL FUMARATE
     Dosage: UNK, BID (1-2 PUFFS TWICE A DAY AS DIRECTED)
     Dates: start: 2025
  6. BREYNA [Suspect]
     Active Substance: BUDESONIDE\FORMOTEROL FUMARATE
     Dosage: UNK, BID (1-2 PUFFS TWICE A DAY AS DIRECTED)
     Dates: start: 2025
  7. BREYNA [Suspect]
     Active Substance: BUDESONIDE\FORMOTEROL FUMARATE
     Dosage: UNK, BID (1-2 PUFFS TWICE A DAY AS DIRECTED)
     Route: 055
     Dates: start: 2025
  8. BREYNA [Suspect]
     Active Substance: BUDESONIDE\FORMOTEROL FUMARATE
     Dosage: UNK, BID (1-2 PUFFS TWICE A DAY AS DIRECTED)
     Route: 055
     Dates: start: 2025

REACTIONS (2)
  - Off label use [Unknown]
  - Device delivery system issue [Unknown]

NARRATIVE: CASE EVENT DATE: 20250701
